FAERS Safety Report 5827968-0 (Version None)
Quarter: 2008Q3

REPORT INFORMATION
  Report Type: 
  Country: None (occurrence: None)
  Receive Date: 20080730
  Receipt Date: 20080715
  Transmission Date: 20090109
  Serious: Yes (Other)
  Sender: FDA-Public Use
  Company Number: JP-PFIZER INC-2008062796

PATIENT
  Age: 52 Year
  Sex: Female

DRUGS (1)
  1. CHANTIX [Suspect]
     Dosage: DAILY DOSE:2MG
     Route: 048
     Dates: start: 20080610, end: 20080702

REACTIONS (1)
  - CHOKING SENSATION [None]
